FAERS Safety Report 10208922 (Version 1)
Quarter: 2014Q2

REPORT INFORMATION
  Report Type: Spontaneous
  Country: GB (occurrence: GB)
  Receive Date: 20140530
  Receipt Date: 20140530
  Transmission Date: 20141212
  Serious: Yes (Other)
  Sender: FDA-Public Use
  Company Number: PHHY2014GB065090

PATIENT
  Age: 37 Year
  Sex: Female
  Weight: 62.59 kg

DRUGS (2)
  1. METRONIDAZOLE [Suspect]
     Indication: BACTERIAL VAGINOSIS
     Dosage: 750 MG
     Route: 048
     Dates: start: 20140507
  2. INTRAUTERINE CONTRACEPTIVE DEVICE [Concomitant]

REACTIONS (7)
  - Crying [Unknown]
  - Furuncle [Unknown]
  - Tinnitus [Unknown]
  - Night sweats [Unknown]
  - Depressed mood [Unknown]
  - Tongue coated [Unknown]
  - Dysgeusia [Unknown]
